FAERS Safety Report 12913499 (Version 2)
Quarter: 2016Q4

REPORT INFORMATION
  Report Type: Spontaneous
  Country: JP (occurrence: JP)
  Receive Date: 20161104
  Receipt Date: 20161205
  Transmission Date: 20170207
  Serious: No
  Sender: FDA-Public Use
  Company Number: JP-MYLANLABS-2016M1046531

PATIENT

DRUGS (4)
  1. PROEMEND [Suspect]
     Active Substance: FOSAPREPITANT
     Indication: PRODUCT USED FOR UNKNOWN INDICATION
     Dosage: 150 MG, UNK
     Route: 041
     Dates: start: 20160830, end: 20161011
  2. FLUOROURACIL. [Concomitant]
     Active Substance: FLUOROURACIL
     Indication: BREAST CANCER
     Dosage: UNK, CYCLE
     Route: 065
     Dates: start: 20160830
  3. EPIRUBICIN MYLAN [Suspect]
     Active Substance: EPIRUBICIN
     Indication: BREAST CANCER
     Dosage: UNK, CYCLE
     Route: 041
     Dates: start: 20160830, end: 20161011
  4. ENDOXAN                            /00021101/ [Concomitant]
     Active Substance: CYCLOPHOSPHAMIDE
     Indication: BREAST CANCER
     Dosage: UNK, CYCLE
     Route: 065
     Dates: start: 20160830

REACTIONS (1)
  - Phlebitis [Recovering/Resolving]

NARRATIVE: CASE EVENT DATE: 20160920
